FAERS Safety Report 10479456 (Version 1)
Quarter: 2014Q3

REPORT INFORMATION
  Report Type: Report from Study
  Country: US (occurrence: US)
  Receive Date: 20140926
  Receipt Date: 20140926
  Transmission Date: 20150326
  Serious: Yes (Other)
  Sender: FDA-Public Use
  Company Number: US-ALEXION PHARMACEUTICALS INC-A201203171

PATIENT

DRUGS (1)
  1. SOLIRIS [Suspect]
     Active Substance: ECULIZUMAB
     Indication: PAROXYSMAL NOCTURNAL HAEMOGLOBINURIA

REACTIONS (9)
  - Biopsy bone marrow [Unknown]
  - Blood urine present [Unknown]
  - Quality of life decreased [Unknown]
  - Abdominal pain [Unknown]
  - Fatigue [Unknown]
  - Chest pain [Unknown]
  - Pyrexia [Unknown]
  - Haemoglobinuria [Unknown]
  - Dysphagia [Unknown]
